FAERS Safety Report 21564374 (Version 1)
Quarter: 2022Q4

REPORT INFORMATION
  Report Type: Spontaneous
  Country: CA (occurrence: CA)
  Receive Date: 20221108
  Receipt Date: 20221108
  Transmission Date: 20230113
  Serious: Yes (Other)
  Sender: FDA-Public Use
  Company Number: CA-SAMSUNG BIOEPIS-SB-2022-27845

PATIENT
  Age: 47 Year
  Sex: Female

DRUGS (1)
  1. INFLIXIMAB [Suspect]
     Active Substance: INFLIXIMAB
     Indication: Ankylosing spondylitis
     Route: 042

REACTIONS (5)
  - Drug eruption [Recovered/Resolved]
  - Erythema [Recovered/Resolved]
  - Ovarian cyst [Recovered/Resolved]
  - Pruritus [Recovered/Resolved]
  - Sinus congestion [Recovered/Resolved]
